FAERS Safety Report 20306613 (Version 1)
Quarter: 2022Q1

REPORT INFORMATION
  Report Type: Spontaneous
  Country: ES (occurrence: ES)
  Receive Date: 20220106
  Receipt Date: 20220106
  Transmission Date: 20220423
  Serious: Yes (Hospitalization)
  Sender: FDA-Public Use
  Company Number: None

PATIENT
  Age: 48 Year
  Sex: Female

DRUGS (9)
  1. TECFIDERA [Suspect]
     Active Substance: DIMETHYL FUMARATE
     Indication: Multiple sclerosis
     Route: 048
     Dates: start: 20170802, end: 20210629
  2. FOLIC ACID (149A) [Concomitant]
     Indication: Product used for unknown indication
     Route: 065
  3. ACETAMINOPHEN\TRAMADOL [Concomitant]
     Active Substance: ACETAMINOPHEN\TRAMADOL
     Indication: Product used for unknown indication
     Route: 065
  4. ALPRAZOLAM [Concomitant]
     Active Substance: ALPRAZOLAM
     Indication: Product used for unknown indication
     Route: 065
  5. OMEPRAZOLE [Concomitant]
     Active Substance: OMEPRAZOLE
     Indication: Product used for unknown indication
     Route: 065
  6. CYANOCOBALAMIN (56A) [Concomitant]
     Indication: Product used for unknown indication
     Route: 065
  7. LEVOTHYROXINE SODIUM (1842SO) [Concomitant]
     Indication: Product used for unknown indication
     Route: 065
  8. TRAZODONE HYDROCHLORIDE (3160CH) [Concomitant]
     Indication: Product used for unknown indication
     Route: 065
  9. DULOXETINE (7421A) [Concomitant]
     Indication: Product used for unknown indication
     Route: 065

REACTIONS (1)
  - Neoplasm [Recovered/Resolved with Sequelae]

NARRATIVE: CASE EVENT DATE: 20210614
